FAERS Safety Report 7102968-1 (Version None)
Quarter: 2010Q4

REPORT INFORMATION
  Report Type: 
  Country: None (occurrence: None)
  Receive Date: 20101115
  Receipt Date: 20101109
  Transmission Date: 20110411
  Serious: Yes (Life-Threatening, Hospitalization, Other)
  Sender: FDA-Public Use
  Company Number: JP-JNJFOC-20100608283

PATIENT
  Sex: Male

DRUGS (42)
  1. RISPERDAL [Suspect]
     Indication: SCHIZOPHRENIA
     Route: 048
  2. RISPERDAL [Suspect]
     Route: 048
  3. RISPERDAL [Suspect]
     Route: 048
  4. RISPERDAL [Suspect]
     Route: 048
  5. QUETIAPINE FUMARATE [Suspect]
     Indication: ILL-DEFINED DISORDER
     Dosage: 300 (UNIT NOT SPECIFIED)
     Route: 048
  6. QUETIAPINE FUMARATE [Suspect]
     Route: 048
  7. CREMIN [Concomitant]
     Route: 048
  8. CREMIN [Concomitant]
     Route: 048
  9. AKINETON [Concomitant]
     Route: 048
  10. AKINETON [Concomitant]
     Route: 048
  11. AKINETON [Concomitant]
     Route: 048
  12. MAGNESIUM OXIDE [Concomitant]
     Route: 048
  13. MAGNESIUM OXIDE [Concomitant]
     Route: 048
  14. MAGNESIUM OXIDE [Concomitant]
     Route: 048
  15. ROHYPNOL [Concomitant]
     Route: 048
  16. ROHYPNOL [Concomitant]
     Route: 048
  17. ROHYPNOL [Concomitant]
     Route: 048
  18. ROHYPNOL [Concomitant]
     Route: 048
  19. ROHYPNOL [Concomitant]
     Route: 048
  20. ROHYPNOL [Concomitant]
     Route: 048
  21. CHLORPROMAZINE HYDROCHLORIDE [Concomitant]
     Route: 048
  22. CHLORPROMAZINE HYDROCHLORIDE [Concomitant]
     Route: 048
  23. SERENACE [Concomitant]
     Route: 048
  24. MAGMITT [Concomitant]
     Route: 048
  25. MAGMITT [Concomitant]
     Route: 048
  26. MAGMITT [Concomitant]
     Route: 048
  27. UNKNOWN MEDICATION [Concomitant]
     Route: 048
  28. UNKNOWN MEDICATION [Concomitant]
     Route: 048
  29. URIEF [Concomitant]
     Route: 048
  30. EVIPROSTAT [Concomitant]
     Route: 048
  31. RISPERIDONE [Concomitant]
     Route: 048
  32. RISPERIDONE [Concomitant]
     Route: 048
  33. GASMOTIN [Concomitant]
     Route: 048
  34. GASMOTIN [Concomitant]
     Route: 048
  35. REBAMIPIDE [Concomitant]
     Route: 048
  36. TAMSULOSIN HYDROCHLORIDE [Concomitant]
     Route: 048
  37. TAMSULOSIN HYDROCHLORIDE [Concomitant]
     Dosage: 1 DF
     Route: 048
  38. UBRETID [Concomitant]
     Route: 048
  39. UBRETID [Concomitant]
     Route: 048
  40. WARFARIN [Concomitant]
     Route: 048
  41. WARFARIN [Concomitant]
     Route: 048
  42. CABAGIN U [Concomitant]
     Dosage: 3 DF
     Route: 048

REACTIONS (8)
  - BENIGN PROSTATIC HYPERPLASIA [None]
  - CEREBRAL INFARCTION [None]
  - DIET REFUSAL [None]
  - PERSECUTORY DELUSION [None]
  - PULMONARY EMBOLISM [None]
  - PYREXIA [None]
  - RENAL FAILURE ACUTE [None]
  - RHABDOMYOLYSIS [None]
